FAERS Safety Report 5799244-6 (Version None)
Quarter: 2008Q4

REPORT INFORMATION
  Report Type: 
  Country: None (occurrence: None)
  Receive Date: 20080701
  Receipt Date: 20080627
  Transmission Date: 20090506
  Serious: Yes (Other)
  Sender: FDA-Public Use
  Company Number: A0735407A

PATIENT
  Age: 65 Year
  Sex: Female

DRUGS (4)
  1. ASPIRIN [Suspect]
     Indication: ARTERIOSCLEROSIS
     Dosage: 325 MG PER DAY DAY/ ORAL
     Route: 048
     Dates: end: 20080514
  2. PLAVIX [Suspect]
     Indication: ARTERIOSCLEROSIS
     Dosage: 75 MG /  ORAL
     Route: 048
     Dates: start: 19980101, end: 20080514
  3. INT./ LONG ACTING INSULIN (LANTUS) [Concomitant]
  4. HUMALOG [Concomitant]

REACTIONS (2)
  - BLINDNESS UNILATERAL [None]
  - EYE HAEMORRHAGE [None]
